FAERS Safety Report 25792938 (Version 2)
Quarter: 2025Q3

REPORT INFORMATION
  Report Type: Report from Study
  Country: EU (occurrence: EU)
  Receive Date: 20250911
  Receipt Date: 20250926
  Transmission Date: 20251021
  Serious: Yes (Other)
  Sender: VERITY PHARMACEUTICALS INC.
  Company Number: EU-VER-202500008

PATIENT

DRUGS (2)
  1. TRIPTORELIN [Suspect]
     Active Substance: TRIPTORELIN
     Indication: Prostate cancer
     Route: 065
  2. BICALUTAMIDE [Suspect]
     Active Substance: BICALUTAMIDE
     Indication: Prostate cancer
     Route: 065

REACTIONS (6)
  - Rash [Unknown]
  - Transaminases increased [Unknown]
  - Gastrointestinal toxicity [Unknown]
  - Urinary tract toxicity [Unknown]
  - Gynaecomastia [Unknown]
  - Rectal haemorrhage [Unknown]
